FAERS Safety Report 4894362-9 (Version None)
Quarter: 2006Q1

REPORT INFORMATION
  Report Type: 
  Country: None (occurrence: None)
  Receive Date: 20060127
  Receipt Date: 20060117
  Transmission Date: 20060701
  Serious: Yes (Other)
  Sender: FDA-Public Use
  Company Number: PHBS2006SE01007

PATIENT
  Sex: Female

DRUGS (9)
  1. ZOMETA [Suspect]
     Indication: MULTIPLE MYELOMA
     Dosage: 4 MG, QMO
     Dates: start: 20020101
  2. THALIDOMIDE [Concomitant]
     Route: 065
  3. DIFLUCAN [Concomitant]
     Route: 065
  4. ALVEDON [Concomitant]
     Route: 065
  5. KALIUM [Concomitant]
     Route: 065
  6. WARAN [Concomitant]
     Route: 065
  7. OXYNORM [Concomitant]
     Route: 065
  8. OXYCONTIN [Concomitant]
     Route: 065
  9. OXASCAND [Concomitant]
     Route: 065

REACTIONS (5)
  - BONE DISORDER [None]
  - DENTAL OPERATION [None]
  - GINGIVAL BLISTER [None]
  - OSTEONECROSIS [None]
  - SURGERY [None]
